FAERS Safety Report 8439668-1 (Version None)
Quarter: 2012Q2

REPORT INFORMATION
  Report Type: 
  Country: None (occurrence: None)
  Receive Date: 20120615
  Receipt Date: 20120606
  Transmission Date: 20120825
  Serious: Yes (Hospitalization)
  Sender: FDA-Public Use
  Company Number: US-PFIZER INC-2012136575

PATIENT
  Age: 10 Year
  Sex: Male
  Weight: 49.6 kg

DRUGS (6)
  1. TEMSIROLIMUS [Suspect]
     Indication: B PRECURSOR TYPE ACUTE LEUKAEMIA
     Dosage: 7.5 MG/M2, OVER 30 MINUTES ON DAYS 1, 8 AND 15 (MAX DOSE: 15 MG)
     Route: 042
     Dates: start: 20120511
  2. DEXAMETHASONE SODIUM PHOSPHATE [Suspect]
     Indication: B PRECURSOR TYPE ACUTE LEUKAEMIA
     Dosage: 10 MG/M2/ DOSE PO BID OR IV ON DAYS 1-5 AND 15-19.
     Dates: start: 20120511
  3. PEG-ASPARAGINASE [Suspect]
     Indication: B PRECURSOR TYPE ACUTE LEUKAEMIA
     Dosage: 2500 IU/M2, OVER 1 HOUR ON DAYS 3 AND 17 OR ((IF ALLERGIC TO PEGASPARGASE USE ERWINIA ASPARAGINASE)
     Route: 042
     Dates: start: 20120511
  4. METHOTREXATE [Suspect]
     Indication: B PRECURSOR TYPE ACUTE LEUKAEMIA
     Dosage: 8-15MG (AGE BASED DOSING) IT ON DAYS 1 (OR UP TO 72 HOURS PRIOR TO DAY 1) AND 8
     Dates: start: 20120511
  5. VINCRISTINE SULFATE [Suspect]
     Indication: B PRECURSOR TYPE ACUTE LEUKAEMIA
     Dosage: 1.5 MG/M2 (MAX 2 MG), PUSH OVER 1-5 MINUTES OR INFUSION VIA MINIBAG ON DAYS 1,8,15,22.
     Route: 042
     Dates: start: 20120511
  6. MITOXANTRONE HYDROCHLORIDE [Suspect]
     Indication: B PRECURSOR TYPE ACUTE LEUKAEMIA
     Dosage: 10 MG/M2 IV OVER 30 MINUTES ON DAYS 1 AND 2, AND
     Route: 042
     Dates: start: 20120511

REACTIONS (1)
  - ANAL ULCER [None]
